FAERS Safety Report 22638940 (Version 1)
Quarter: 2023Q2

REPORT INFORMATION
  Report Type: Report from Study
  Country: MX (occurrence: MX)
  Receive Date: 20230626
  Receipt Date: 20230626
  Transmission Date: 20230721
  Serious: Yes (Other)
  Sender: FDA-Public Use
  Company Number: MX-002147023-NVSC2022MX237393

PATIENT
  Sex: Female

DRUGS (1)
  1. GILENYA [Suspect]
     Active Substance: FINGOLIMOD HYDROCHLORIDE
     Indication: Multiple sclerosis
     Dosage: 0.5 MG, QD
     Route: 048
     Dates: start: 202104

REACTIONS (10)
  - Hemiparesis [Not Recovered/Not Resolved]
  - Intervertebral disc protrusion [Unknown]
  - Hypoaesthesia [Recovering/Resolving]
  - Thyroid disorder [Not Recovered/Not Resolved]
  - Gastritis [Unknown]
  - Spinal disorder [Unknown]
  - Fall [Unknown]
  - Mobility decreased [Unknown]
  - Muscular weakness [Unknown]
  - Back pain [Not Recovered/Not Resolved]
